FAERS Safety Report 21488362 (Version 1)
Quarter: 2022Q4

REPORT INFORMATION
  Report Type: Report from Study
  Country: US (occurrence: US)
  Receive Date: 20221021
  Receipt Date: 20221021
  Transmission Date: 20230112
  Serious: Yes (Hospitalization, Other)
  Sender: FDA-Public Use
  Company Number: US-BoehringerIngelheim-2022-BI-154552

PATIENT
  Age: 67 Year
  Sex: Male

DRUGS (3)
  1. OFEV [Suspect]
     Active Substance: NINTEDANIB
     Indication: Pulmonary fibrosis
     Route: 048
  2. FLAVOXATE [Concomitant]
     Active Substance: FLAVOXATE
     Indication: Product used for unknown indication
  3. PRAMIPEXOLE [Concomitant]
     Active Substance: PRAMIPEXOLE
     Indication: Product used for unknown indication

REACTIONS (13)
  - Prostate cancer [Unknown]
  - Diarrhoea [Recovered/Resolved]
  - Cerebral palsy [Unknown]
  - Weight decreased [Unknown]
  - Vomiting [Unknown]
  - Influenza [Unknown]
  - COVID-19 [Unknown]
  - Diarrhoea [Unknown]
  - Decreased appetite [Unknown]
  - Fatigue [Unknown]
  - Feeling abnormal [Unknown]
  - Nausea [Unknown]
  - Bowel movement irregularity [Recovering/Resolving]

NARRATIVE: CASE EVENT DATE: 20220901
